FAERS Safety Report 25563032 (Version 1)
Quarter: 2025Q3

REPORT INFORMATION
  Report Type: Spontaneous
  Country: US (occurrence: US)
  Receive Date: 20250716
  Receipt Date: 20250716
  Transmission Date: 20251021
  Serious: No
  Sender: NOVO NORDISK
  Company Number: US-NOVOPROD-1379284

PATIENT
  Age: 49 Year
  Sex: Female

DRUGS (2)
  1. OZEMPIC [Suspect]
     Active Substance: SEMAGLUTIDE
  2. OZEMPIC [Suspect]
     Active Substance: SEMAGLUTIDE
     Indication: Type 2 diabetes mellitus
     Dosage: 1 MG, QW
     Dates: start: 20250115

REACTIONS (7)
  - Paraesthesia oral [Unknown]
  - Viral infection [Recovered/Resolved]
  - Hyperhidrosis [Unknown]
  - Injection site discomfort [Recovered/Resolved]
  - Nausea [Unknown]
  - Fatigue [Recovered/Resolved]
  - Product odour abnormal [Unknown]

NARRATIVE: CASE EVENT DATE: 20250101
